FAERS Safety Report 5530408-2 (Version None)
Quarter: 2007Q4

REPORT INFORMATION
  Report Type: 
  Country: None (occurrence: None)
  Receive Date: 20071127
  Receipt Date: 20071115
  Transmission Date: 20080405
  Serious: Yes (Other)
  Sender: FDA-Public Use
  Company Number: 164265USA

PATIENT
  Age: 21 Year
  Sex: Male

DRUGS (3)
  1. PIMOZIDE TABLETS (PIMOZIDE) [Suspect]
     Dosage: ONE TOTAL ORAL
     Route: 048
     Dates: start: 20071104, end: 20071104
  2. TIAPRIDE HYDROCHLORIDE [Suspect]
     Dosage: ONE TOTAL ORAL
     Route: 048
     Dates: start: 20071104
  3. ZOPICLONE [Suspect]
     Dosage: ONE TOTAL ORAL
     Route: 048
     Dates: start: 20071104

REACTIONS (3)
  - DECREASED ACTIVITY [None]
  - MULTIPLE DRUG OVERDOSE INTENTIONAL [None]
  - SUICIDE ATTEMPT [None]
